FAERS Safety Report 23773231 (Version 3)
Quarter: 2024Q3

REPORT INFORMATION
  Report Type: Spontaneous
  Country: IN (occurrence: IN)
  Receive Date: 20240423
  Receipt Date: 20240829
  Transmission Date: 20241017
  Serious: Yes (Other)
  Sender: PFIZER
  Company Number: IN-PFIZER INC-PV202300076403

PATIENT
  Age: 57 Year
  Sex: Female

DRUGS (2)
  1. LORLATINIB [Suspect]
     Active Substance: LORLATINIB
     Indication: Non-small cell lung cancer
     Dosage: 100 MG, 1X/DAY
     Route: 048
     Dates: start: 202302
  2. ROSUVASTATIN CALCIUM [Concomitant]
     Active Substance: ROSUVASTATIN CALCIUM
     Dosage: 20 MG, 1X/DAY (X HS (AT NIGHT))

REACTIONS (4)
  - Blood pressure increased [Unknown]
  - Body mass index increased [Unknown]
  - Respiratory rate increased [Unknown]
  - Mean arterial pressure increased [Unknown]

NARRATIVE: CASE EVENT DATE: 20240408
